FAERS Safety Report 5935439-6 (Version None)
Quarter: 2008Q4

REPORT INFORMATION
  Report Type: 
  Country: None (occurrence: None)
  Receive Date: 20081030
  Receipt Date: 20081020
  Transmission Date: 20090506
  Serious: Yes (Other)
  Sender: FDA-Public Use
  Company Number: US-CELGENEUS-163-20785-08101301

PATIENT

DRUGS (2)
  1. THALOMID [Suspect]
     Indication: GLIOBLASTOMA MULTIFORME
     Dosage: 100MG FOLLOWED BY DOSE ESCALATION Q2WKS BY 100MG/DY-TARGET 400MG/DY
     Route: 048
  2. IRINOTECAN HYDROCHLORIDE [Suspect]
     Indication: GLIOBLASTOMA MULTIFORME
     Dosage: 700 MG/M2 FOR PTS TAKING ENZYME INDUCING ANTICONVULSANTS AND 350 MG/M2 FOR ALL OTHERS
     Route: 065

REACTIONS (23)
  - ABDOMINAL PAIN [None]
  - ALANINE AMINOTRANSFERASE INCREASED [None]
  - ANOREXIA [None]
  - ASTHENIA [None]
  - COLITIS [None]
  - COMPRESSION FRACTURE [None]
  - CONSTIPATION [None]
  - CONVULSION [None]
  - CUSHINGOID [None]
  - DEEP VEIN THROMBOSIS [None]
  - DIARRHOEA [None]
  - DYSPHAGIA [None]
  - HEADACHE [None]
  - HYPERGLYCAEMIA [None]
  - HYPOCALCAEMIA [None]
  - INFECTION [None]
  - NAUSEA [None]
  - NERVOUS SYSTEM DISORDER [None]
  - NEUTROPENIA [None]
  - PULMONARY EMBOLISM [None]
  - SOMNOLENCE [None]
  - TREMOR [None]
  - VOMITING [None]
